FAERS Safety Report 10256185 (Version 1)
Quarter: 2014Q2

REPORT INFORMATION
  Report Type: Spontaneous
  Country: GB (occurrence: GB)
  Receive Date: 20140624
  Receipt Date: 20140624
  Transmission Date: 20141212
  Serious: Yes (Life-Threatening, Other)
  Sender: FDA-Public Use
  Company Number: GB-PFIZER INC-2014171257

PATIENT
  Age: 36 Year
  Sex: Female
  Weight: 127 kg

DRUGS (5)
  1. PREGABALIN [Suspect]
     Indication: NEURALGIA
     Dosage: UNK
     Route: 048
     Dates: end: 20140513
  2. TYSABRI [Suspect]
     Indication: MULTIPLE SCLEROSIS
     Dosage: 300 MG, UNK
     Route: 042
     Dates: start: 20130117, end: 20140507
  3. BACLOFEN [Concomitant]
     Dosage: UNK
  4. BETAHISTINE [Concomitant]
     Dosage: UNK
  5. CO-CODAMOL [Concomitant]
     Dosage: UNK

REACTIONS (10)
  - Mumps [Unknown]
  - Hepatitis E [Unknown]
  - Hepatic enzyme increased [Recovering/Resolving]
  - Hypoaesthesia [Unknown]
  - Tremor [Unknown]
  - Pain [Unknown]
  - Pruritus generalised [Unknown]
  - Sweat gland disorder [Unknown]
  - Abdominal distension [Unknown]
  - Chromaturia [Unknown]
